FAERS Safety Report 20180493 (Version 1)
Quarter: 2021Q4

REPORT INFORMATION
  Report Type: Spontaneous
  Country: US (occurrence: US)
  Receive Date: 20211214
  Receipt Date: 20211214
  Transmission Date: 20220303
  Serious: No
  Sender: FDA-Public Use
  Company Number: US-Global Blood Therapeutics Inc-US-GBT-21-03053

PATIENT
  Sex: Female

DRUGS (5)
  1. OXBRYTA [Suspect]
     Active Substance: VOXELOTOR
     Indication: Sickle cell disease
     Route: 048
     Dates: start: 20210105
  2. HUMALOG [Concomitant]
     Active Substance: INSULIN LISPRO
     Indication: Type 1 diabetes mellitus
  3. MULTIVITAMIN B3 BIOTIN [Concomitant]
     Indication: Product used for unknown indication
     Dosage: NOT PROVIDED
  4. PERCOCET [Concomitant]
     Active Substance: ACETAMINOPHEN\OXYCODONE HYDROCHLORIDE
     Indication: Product used for unknown indication
     Dosage: AS NEEDED
  5. CANNABIS SATIVA SUBSP. INDICA TOP [Concomitant]
     Active Substance: CANNABIS SATIVA SUBSP. INDICA TOP
     Indication: Medical cannabis therapy
     Dosage: NOT PROVIDED

REACTIONS (4)
  - Nausea [Recovered/Resolved]
  - Diarrhoea [Recovered/Resolved]
  - Therapy cessation [Unknown]
  - Insurance issue [Unknown]

NARRATIVE: CASE EVENT DATE: 20210101
